FAERS Safety Report 4285734-4 (Version None)
Quarter: 2004Q1

REPORT INFORMATION
  Report Type: 
  Country: None (occurrence: None)
  Receive Date: 20040203
  Receipt Date: 20040123
  Transmission Date: 20041129
  Serious: Yes (Hospitalization)
  Sender: FDA-Public Use
  Company Number: STA-AE-03-MTX-176

PATIENT
  Age: 46 Year
  Sex: Female

DRUGS (4)
  1. METHOTREXATE [Suspect]
     Indication: RHEUMATOID ARTHRITIS
     Dosage: 12.5 MG 1X PER 1 WK, ORAL
     Route: 048
     Dates: start: 19860725
  2. ENBREL [Suspect]
     Indication: RHEUMATOID ARTHRITIS
     Dosage: 25 MG 2X PER 1 WK, SC
     Route: 058
     Dates: start: 20020131
  3. NAPROXEN [Concomitant]
  4. FOLIC ACID [Concomitant]

REACTIONS (37)
  - ALANINE AMINOTRANSFERASE DECREASED [None]
  - ALPHA HAEMOLYTIC STREPTOCOCCAL INFECTION [None]
  - ARTHROPATHY [None]
  - BACTERIAL INFECTION [None]
  - BLOOD ALKALINE PHOSPHATASE INCREASED [None]
  - BLOOD CALCIUM DECREASED [None]
  - BLOOD CHLORIDE DECREASED [None]
  - BLOOD PHOSPHORUS [None]
  - BLOOD POTASSIUM DECREASED [None]
  - BLOOD PRESSURE INCREASED [None]
  - BLOOD SODIUM DECREASED [None]
  - BLOOD UREA DECREASED [None]
  - BODY TEMPERATURE INCREASED [None]
  - CARDIOMYOPATHY [None]
  - COMA [None]
  - DEHYDRATION [None]
  - DIFFERENTIAL WHITE BLOOD CELL COUNT ABNORMAL [None]
  - EAR INFECTION [None]
  - EJECTION FRACTION DECREASED [None]
  - ELECTROCARDIOGRAM ST SEGMENT ABNORMAL [None]
  - HAEMATOCRIT DECREASED [None]
  - HAEMOGLOBIN DECREASED [None]
  - INFLAMMATION [None]
  - MASTOIDITIS [None]
  - MEAN CELL HAEMOGLOBIN INCREASED [None]
  - MENINGITIS PNEUMOCOCCAL [None]
  - MUCOSAL HAEMORRHAGE [None]
  - NASAL DRYNESS [None]
  - PNEUMOCEPHALUS [None]
  - PNEUMOCOCCAL SEPSIS [None]
  - RED BLOOD CELL COUNT DECREASED [None]
  - RIB FRACTURE [None]
  - SINUS TACHYCARDIA [None]
  - SINUSITIS [None]
  - UPPER RESPIRATORY TRACT INFECTION [None]
  - VENTRICULAR TACHYCARDIA [None]
  - WHEEZING [None]
